FAERS Safety Report 11416303 (Version 2)
Quarter: 2015Q4

REPORT INFORMATION
  Report Type: Spontaneous
  Country: MM (occurrence: MM)
  Receive Date: 20150825
  Receipt Date: 20151002
  Transmission Date: 20160304
  Serious: No
  Sender: FDA-Public Use
  Company Number: MM-NOVOPROD-460630

PATIENT
  Age: 62 Year
  Sex: Male
  Weight: 92.6 kg

DRUGS (11)
  1. MIXTARD HUMAN 70/30 [Suspect]
     Active Substance: INSULIN HUMAN
     Indication: DIABETES MELLITUS
     Dosage: 30 U, QD
     Route: 058
     Dates: start: 20150331, end: 20150425
  2. DURACARD [Concomitant]
     Dosage: ONE DAILY
  3. MIXTARD HUMAN 70/30 [Suspect]
     Active Substance: INSULIN HUMAN
     Dosage: 68 U, QD
     Route: 058
     Dates: start: 20150425, end: 20150707
  4. IROVEL [Concomitant]
     Dosage: 1 MG, QD
  5. DILATREND [Concomitant]
     Active Substance: CARVEDILOL
     Dosage: 3 MG, QD
  6. MONOTRATE [Concomitant]
     Dosage: 2 MG, QD
  7. NOVONORM [Concomitant]
     Active Substance: REPAGLINIDE
     Dosage: 2 MG, QD
  8. NIFEDI DENK [Concomitant]
     Dosage: 2 MG, QD
  9. AZTOR [Concomitant]
     Dosage: 1 MG, QD
  10. ALLOPURINOL. [Concomitant]
     Active Substance: ALLOPURINOL
     Dosage: 2 MG, QD
  11. LASIX [Concomitant]
     Active Substance: FUROSEMIDE
     Dosage: 3 MG, QD

REACTIONS (4)
  - Chest discomfort [Not Recovered/Not Resolved]
  - Enlarged uvula [Not Recovered/Not Resolved]
  - Pruritus generalised [Not Recovered/Not Resolved]
  - Dyspnoea [Not Recovered/Not Resolved]

NARRATIVE: CASE EVENT DATE: 20150707
